FAERS Safety Report 18011099 (Version 2)
Quarter: 2020Q4

REPORT INFORMATION
  Report Type: Report from Study
  Country: US (occurrence: US)
  Receive Date: 20200711
  Receipt Date: 20201218
  Transmission Date: 20210113
  Serious: Yes (Other)
  Sender: FDA-Public Use
  Company Number: NVSC2020US180501

PATIENT
  Age: 1 Year
  Sex: Female

DRUGS (2)
  1. PREDNISOLONE. [Concomitant]
     Active Substance: PREDNISOLONE
     Indication: PROPHYLAXIS
     Dosage: 1 MG/KG
     Route: 065
     Dates: start: 20200601
  2. ZOLGENSMA [Suspect]
     Active Substance: ONASEMNOGENE ABEPARVOVEC-XIOI
     Indication: SPINAL MUSCULAR ATROPHY
     Dosage: UNK, ONCE/SINGLE
     Route: 042
     Dates: start: 20200602

REACTIONS (3)
  - Thrombocytopenia [Recovered/Resolved]
  - Troponin I increased [Recovered/Resolved]
  - Troponin I increased [Recovering/Resolving]

NARRATIVE: CASE EVENT DATE: 20200610
